FAERS Safety Report 9887393 (Version 1)
Quarter: 2014Q1

REPORT INFORMATION
  Report Type: Spontaneous
  Country: GB (occurrence: GB)
  Receive Date: 20140211
  Receipt Date: 20140211
  Transmission Date: 20141002
  Serious: Yes (Other)
  Sender: FDA-Public Use
  Company Number: GB-AMGEN-GBRSP2014008677

PATIENT
  Sex: Female

DRUGS (1)
  1. PROLIA [Suspect]
     Indication: PRODUCT USED FOR UNKNOWN INDICATION
     Dosage: UNK
     Route: 065

REACTIONS (6)
  - Compression fracture [Unknown]
  - Asthenia [Recovered/Resolved]
  - Back pain [Recovered/Resolved]
  - Bone pain [Recovering/Resolving]
  - Arthralgia [Unknown]
  - Pain [Unknown]
